FAERS Safety Report 8398326-2 (Version None)
Quarter: 2012Q2

REPORT INFORMATION
  Report Type: 
  Country: None (occurrence: None)
  Receive Date: 20120531
  Receipt Date: 20120522
  Transmission Date: 20120825
  Serious: Yes (Death)
  Sender: FDA-Public Use
  Company Number: US-JNJFOC-20100105351

PATIENT
  Age: 21 Year
  Sex: Male

DRUGS (6)
  1. ACETAMINOPHEN [Suspect]
     Indication: SUICIDE ATTEMPT
     Route: 048
     Dates: start: 20080101, end: 20080101
  2. FLUOXETINE [Suspect]
     Indication: SUICIDE ATTEMPT
     Route: 048
     Dates: start: 20080101, end: 20080101
  3. IBUPROFEN [Suspect]
     Indication: SUICIDE ATTEMPT
     Route: 048
     Dates: start: 20080101, end: 20080101
  4. ACETYLSALICYLIC ACID SRT [Suspect]
     Indication: SUICIDE ATTEMPT
     Route: 048
     Dates: start: 20080101, end: 20080101
  5. VENLAFAXINE HYDROCHLORIDE [Suspect]
     Indication: SUICIDE ATTEMPT
     Route: 048
     Dates: start: 20080101, end: 20080101
  6. ACETAMINOPHEN [Suspect]
     Route: 048

REACTIONS (2)
  - TOXICITY TO VARIOUS AGENTS [None]
  - COMPLETED SUICIDE [None]
